FAERS Safety Report 9226883 (Version 1)
Quarter: 2013Q2

REPORT INFORMATION
  Report Type: Spontaneous
  Country: US (occurrence: None)
  Receive Date: 20130410
  Receipt Date: 20130410
  Transmission Date: 20140414
  Serious: Yes (Hospitalization)
  Sender: FDA-Public Use
  Company Number: 1652923

PATIENT
  Age: 60 Year
  Sex: Male
  Weight: 67.2 kg

DRUGS (4)
  1. NIPENT [Suspect]
     Indication: CHRONIC LYMPHOCYTIC LEUKAEMIA
     Dates: start: 20120416, end: 20120904
  2. CYCLOPHOSPHAMIDE [Suspect]
     Route: 042
     Dates: start: 20120416, end: 20120904
  3. RITUXIMAB [Suspect]
     Indication: CHRONIC LYMPHOCYTIC LEUKAEMIA
     Dates: start: 20120416, end: 20120904
  4. ALEMTUZUMAB [Suspect]
     Indication: CHRONIC LYMPHOCYTIC LEUKAEMIA
     Route: 058
     Dates: start: 20121022, end: 20130222

REACTIONS (2)
  - Febrile neutropenia [None]
  - Lung infection [None]
